FAERS Safety Report 7805191-8 (Version None)
Quarter: 2011Q4

REPORT INFORMATION
  Report Type: 
  Country: None (occurrence: None)
  Receive Date: 20111010
  Receipt Date: 20110929
  Transmission Date: 20120403
  Serious: Yes (Hospitalization, Other)
  Sender: FDA-Public Use
  Company Number: PHHY2011DE88493

PATIENT

DRUGS (5)
  1. HALOPERIDOL [Concomitant]
     Dosage: 2 MG, UNK
  2. CLOZAPINE [Suspect]
  3. OLANZAPINE [Concomitant]
     Dosage: 10 MG, UNK
  4. HALOPERIDOL [Concomitant]
     Dosage: 5 MG, DAILY
  5. LORAZEPAM [Concomitant]
     Dosage: 4.5 MG, UNK

REACTIONS (10)
  - EPILEPSY [None]
  - HYPOTHERMIA [None]
  - GENERAL PHYSICAL HEALTH DETERIORATION [None]
  - STEREOTYPY [None]
  - COORDINATION ABNORMAL [None]
  - GAIT DISTURBANCE [None]
  - PARKINSONISM [None]
  - OXYGEN SATURATION DECREASED [None]
  - APATHY [None]
  - AKINESIA [None]
